FAERS Safety Report 8391744-8 (Version None)
Quarter: 2012Q2

REPORT INFORMATION
  Report Type: 
  Country: None (occurrence: None)
  Receive Date: 20120529
  Receipt Date: 20120522
  Transmission Date: 20120825
  Serious: Yes (Hospitalization, Other)
  Sender: FDA-Public Use
  Company Number: US-PFIZER INC-2010145753

PATIENT
  Sex: Female

DRUGS (10)
  1. XANAX [Suspect]
     Dosage: 0.5 MG, 3X/DAY
     Route: 048
     Dates: start: 20091119, end: 20091101
  2. XANAX [Suspect]
     Dosage: SLOWLY INCREASED FROM 0.5 MG THRICE DAILY TO 0.5 MG SIX TIMES DAILY
     Route: 048
     Dates: start: 20091101, end: 20091101
  3. XANAX [Suspect]
     Dosage: 1 MG, 3X/DAY
     Route: 048
     Dates: start: 20091101, end: 20091124
  4. XANAX [Suspect]
     Dosage: 0.5 MG, 1X/DAY
     Route: 048
     Dates: start: 20091128, end: 20091128
  5. PROGESTERONE [Concomitant]
     Dosage: 200MG/G UNK
     Dates: start: 20091111
  6. XANAX [Suspect]
     Indication: ANXIETY
     Dosage: 0.5 MG, 4X/DAY (AS NEEDED)
     Route: 048
     Dates: start: 20090708
  7. SEROQUEL [Concomitant]
     Dosage: 12.5 MG, AT EVERY BEDTIME
     Route: 048
     Dates: start: 20091130
  8. THYROID [Concomitant]
     Dosage: 32.5 MG, UNK
     Dates: start: 20091111
  9. XANAX [Suspect]
     Indication: SLEEP DISORDER
     Dosage: 0.25 MG, UNK
     Route: 048
     Dates: start: 20091119, end: 20091119
  10. SEROQUEL [Concomitant]
     Indication: ANXIETY
     Dosage: 25 MG, UNK

REACTIONS (42)
  - AFFECTIVE DISORDER [None]
  - HYPERTENSION [None]
  - IMPULSE-CONTROL DISORDER [None]
  - UTERINE PERFORATION [None]
  - INSOMNIA [None]
  - COUGH [None]
  - ABDOMINAL PAIN [None]
  - ACTIVITIES OF DAILY LIVING IMPAIRED [None]
  - INFLAMMATION [None]
  - GAIT DISTURBANCE [None]
  - LUMBAR SPINAL STENOSIS [None]
  - PERSONALITY DISORDER [None]
  - THINKING ABNORMAL [None]
  - PSYCHOMOTOR RETARDATION [None]
  - JUDGEMENT IMPAIRED [None]
  - NAUSEA [None]
  - VOMITING [None]
  - DIARRHOEA [None]
  - SINUS DISORDER [None]
  - HEADACHE [None]
  - PANIC ATTACK [None]
  - STRESS [None]
  - DRUG WITHDRAWAL SYNDROME [None]
  - HYPOTHYROIDISM [None]
  - SUICIDE ATTEMPT [None]
  - MAJOR DEPRESSION [None]
  - DISTURBANCE IN ATTENTION [None]
  - FATIGUE [None]
  - ADRENAL DISORDER [None]
  - MEMORY IMPAIRMENT [None]
  - HEPATITIS [None]
  - SINUS TACHYCARDIA [None]
  - ACIDOSIS [None]
  - CONSTIPATION [None]
  - INTENTIONAL OVERDOSE [None]
  - DECREASED APPETITE [None]
  - ANXIETY [None]
  - DRUG ABUSE [None]
  - WEIGHT DECREASED [None]
  - HYPERCHOLESTEROLAEMIA [None]
  - ABDOMINAL DISCOMFORT [None]
  - DYSPEPSIA [None]
